FAERS Safety Report 5839290-7 (Version None)
Quarter: 2008Q3

REPORT INFORMATION
  Report Type: 
  Country: None (occurrence: None)
  Receive Date: 20080808
  Receipt Date: 20080728
  Transmission Date: 20090109
  Serious: Yes (Hospitalization)
  Sender: FDA-Public Use
  Company Number: US-PFIZER INC-2008063525

PATIENT
  Age: 55 Year
  Sex: Female

DRUGS (4)
  1. EPIRUBICIN HYDROCHLORIDE [Suspect]
  2. FLUOROURACIL [Suspect]
  3. CYCLOPHOSPHAMIDE [Suspect]
  4. PACLITAXEL [Suspect]

REACTIONS (1)
  - SICKLE CELL ANAEMIA WITH CRISIS [None]
